FAERS Safety Report 23356093 (Version 6)
Quarter: 2024Q3

REPORT INFORMATION
  Report Type: Report from Study
  Country: US (occurrence: US)
  Receive Date: 20240102
  Receipt Date: 20240826
  Transmission Date: 20241017
  Serious: Yes (Other)
  Sender: UCB
  Company Number: US-UCBSA-2023058979

PATIENT
  Age: 50 Year
  Sex: Female
  Weight: 74.376 kg

DRUGS (10)
  1. FINTEPLA [Suspect]
     Active Substance: FENFLURAMINE
     Indication: Lennox-Gastaut syndrome
     Dosage: UNK
     Route: 048
     Dates: start: 20220923
  2. FINTEPLA [Suspect]
     Active Substance: FENFLURAMINE
     Dosage: 7 MILLILITER, 2X/DAY (BID)
     Route: 048
     Dates: start: 20231211, end: 20231228
  3. FINTEPLA [Suspect]
     Active Substance: FENFLURAMINE
     Dosage: 5.9 MILLILITER, 2X/DAY (BID)
     Route: 048
  4. FINTEPLA [Suspect]
     Active Substance: FENFLURAMINE
     Dosage: 5.9 MILLILITER, 2X/DAY (BID)
     Route: 048
     Dates: end: 20240724
  5. DEPAKOTE [Concomitant]
     Active Substance: DIVALPROEX SODIUM
     Indication: Epilepsy
     Dosage: UNK
  6. EPIDIOLEX [Concomitant]
     Active Substance: CANNABIDIOL
     Indication: Epilepsy
     Dosage: 5.5 ML (550 MG)2X/DAY (BID)
  7. ZONISAMIDE [Concomitant]
     Active Substance: ZONISAMIDE
     Indication: Epilepsy
     Dosage: 300 MILLIGRAM PER DAY
  8. LAMICTAL [Concomitant]
     Active Substance: LAMOTRIGINE
     Indication: Epilepsy
     Dosage: 100 MILLIGRAM, 2X/DAY (BID)+ 200 MILLIGRAMS QHS
  9. ONFI [Concomitant]
     Active Substance: CLOBAZAM
     Indication: Epilepsy
     Dosage: 10 MG QAM,10 MG NOON+20 MG QHS
  10. BANZEL [Concomitant]
     Active Substance: RUFINAMIDE
     Indication: Epilepsy
     Dosage: UNK

REACTIONS (9)
  - Seizure [Recovered/Resolved]
  - Vagal nerve stimulator implantation [Unknown]
  - Mastectomy [Unknown]
  - Wrist fracture [Recovered/Resolved]
  - Fall [Unknown]
  - Prescribed overdose [Unknown]
  - Off label use [Unknown]
  - Drug ineffective [Unknown]
  - Therapeutic response unexpected [Unknown]

NARRATIVE: CASE EVENT DATE: 20220923
